FAERS Safety Report 9399699 (Version 1)
Quarter: 2013Q3

REPORT INFORMATION
  Report Type: Spontaneous
  Country: US (occurrence: US)
  Receive Date: 20130710
  Receipt Date: 20130710
  Transmission Date: 20140515
  Serious: Yes (Life-Threatening, Hospitalization, Other)
  Sender: FDA-Public Use
  Company Number: DAV-AE-LOR-13-06

PATIENT
  Age: 55 Year
  Sex: Female

DRUGS (2)
  1. LORAZEPAM [Suspect]
     Indication: SUBSTANCE USE
  2. GABAPENTIN [Concomitant]

REACTIONS (6)
  - Toxicity to various agents [None]
  - Tremor [None]
  - Somnolence [None]
  - Coma [None]
  - Hyperreflexia [None]
  - Drug abuse [None]
